FAERS Safety Report 4379903-2 (Version None)
Quarter: 2004Q2

REPORT INFORMATION
  Report Type: 
  Country: None (occurrence: None)
  Receive Date: 20040614
  Receipt Date: 20040528
  Transmission Date: 20050107
  Serious: Yes (Hospitalization)
  Sender: FDA-Public Use
  Company Number: S04-DEN-02358-01

PATIENT
  Age: 37 Year
  Sex: Male

DRUGS (4)
  1. CIPRALEX (ESCITALOPRAM) [Suspect]
     Indication: DEPRESSION
     Dosage: 10 MG QD PO
     Route: 048
     Dates: start: 20031030, end: 20040116
  2. CIPRALEX (ESCITALOPRAM) [Suspect]
     Indication: DEPRESSION
     Dosage: 10 MG QD PO
     Route: 048
     Dates: start: 20040312, end: 20040315
  3. BENDROFLUMETHIAZIDE [Concomitant]
  4. WARFARIN SODIUM [Concomitant]

REACTIONS (5)
  - EMOTIONAL DISORDER [None]
  - GASTROENTERITIS [None]
  - HEPATITIS TOXIC [None]
  - INTERNATIONAL NORMALISED RATIO DECREASED [None]
  - INTERNATIONAL NORMALISED RATIO INCREASED [None]
